FAERS Safety Report 19011577 (Version 1)
Quarter: 2021Q1

REPORT INFORMATION
  Report Type: Spontaneous
  Country: DE (occurrence: DE)
  Receive Date: 20210316
  Receipt Date: 20210316
  Transmission Date: 20210420
  Serious: Yes (Hospitalization)
  Sender: FDA-Public Use
  Company Number: DE-UCBSA-2021010786

PATIENT
  Age: 7 Month
  Sex: Female
  Weight: 6.5 kg

DRUGS (4)
  1. KEPPRA [Suspect]
     Active Substance: LEVETIRACETAM
     Dosage: DAILY DOSE: 2.4 ML MILLILITRE(S) EVERY DAYS 2 SEPARATED DOSES
     Route: 048
     Dates: start: 20190202, end: 20190311
  2. KEPPRA [Suspect]
     Active Substance: LEVETIRACETAM
     Dosage: DAILY DOSE: 3 ML MILLILITRE(S) EVERY DAYS 2 SEPARATED DOSES
     Dates: start: 20190312, end: 201904
  3. KEPPRA [Suspect]
     Active Substance: LEVETIRACETAM
     Indication: EPILEPSY
     Dosage: DAILY DOSE: 2.4 ML MILLILITRE(S) EVERY DAYS 3 SEPARATED DOSES
     Route: 048
     Dates: start: 20181108, end: 20190201
  4. PHENOBARBITAL. [Suspect]
     Active Substance: PHENOBARBITAL
     Indication: EPILEPSY
     Dosage: DAILY DOSE: 30 MG MILLGRAM(S) EVERY DAYS 2 SEPARATED DOSES
     Route: 048
     Dates: start: 20190125, end: 201904

REACTIONS (4)
  - Treatment noncompliance [Unknown]
  - Seizure [Unknown]
  - Product administration error [Unknown]
  - Epilepsy [Unknown]

NARRATIVE: CASE EVENT DATE: 2019
